FAERS Safety Report 7270112-6 (Version None)
Quarter: 2011Q1

REPORT INFORMATION
  Report Type: 
  Country: None (occurrence: None)
  Receive Date: 20110202
  Receipt Date: 20110120
  Transmission Date: 20110831
  Serious: No
  Sender: FDA-Public Use
  Company Number: BR-ELI_LILLY_AND_COMPANY-BR201011003675

PATIENT
  Sex: Female
  Weight: 60 kg

DRUGS (6)
  1. METFORMIN HYDROCHLORIDE [Concomitant]
     Indication: DIABETES MELLITUS
     Dosage: 750 MG, UNKNOWN
     Route: 065
  2. CALCIUM W/VITAMIN D /00188401/ [Concomitant]
     Indication: CALCIUM DEFICIENCY
     Dosage: UNK, UNKNOWN
     Route: 065
  3. CYMBALTA [Suspect]
     Indication: DEPRESSION
     Dosage: 60 MG, DAILY (1/D)
     Route: 065
     Dates: start: 20100501
  4. BENICAR [Concomitant]
     Indication: HYPERTENSION
     Dosage: 40 MG, UNKNOWN
     Route: 065
  5. PANTOPRAZOL [Concomitant]
     Indication: GASTRIC DISORDER
     Dosage: UNK, UNKNOWN
     Route: 065
  6. GLUCOSAMINE SULFATE W/CHONDROITIN SULFATE [Concomitant]
     Indication: OSTEOARTHRITIS
     Dosage: UNK, UNKNOWN
     Route: 065

REACTIONS (3)
  - TREMOR [None]
  - GASTROINTESTINAL BACTERIAL INFECTION [None]
  - TENSION [None]
